FAERS Safety Report 7389096-5 (Version None)
Quarter: 2011Q2

REPORT INFORMATION
  Report Type: 
  Country: None (occurrence: None)
  Receive Date: 20110401
  Receipt Date: 20110329
  Transmission Date: 20111010
  Serious: Yes (Life-Threatening, Hospitalization)
  Sender: FDA-Public Use
  Company Number: DK-ROCHE-765630

PATIENT
  Sex: Male

DRUGS (3)
  1. XELODA [Suspect]
     Indication: RECTAL CANCER
     Route: 048
  2. OXALIPLATIN [Suspect]
     Indication: RECTAL CANCER
     Route: 042
  3. AVASTIN [Suspect]
     Indication: RECTAL CANCER
     Route: 042

REACTIONS (1)
  - RECTAL PERFORATION [None]
